FAERS Safety Report 22266055 (Version 1)
Quarter: 2023Q2

REPORT INFORMATION
  Report Type: Spontaneous
  Country: US (occurrence: US)
  Receive Date: 20230428
  Receipt Date: 20230428
  Transmission Date: 20230722
  Serious: Yes (Other)
  Sender: FDA-Public Use
  Company Number: US-BIOVITRUM-2023-US-008352

PATIENT
  Age: 64 Year
  Sex: Female

DRUGS (1)
  1. KINERET [Suspect]
     Active Substance: ANAKINRA
     Indication: Still^s disease
     Dosage: FREQUENCY: DAILY
     Route: 058
     Dates: start: 20190416

REACTIONS (8)
  - Deafness [Unknown]
  - Intentional product misuse [Unknown]
  - Thyroid disorder [Unknown]
  - Illness [Unknown]
  - Accident [Unknown]
  - Hypoacusis [Unknown]
  - Balance disorder [Unknown]
  - Feeling abnormal [Unknown]

NARRATIVE: CASE EVENT DATE: 20190416
